FAERS Safety Report 13528343 (Version 1)
Quarter: 2017Q2

REPORT INFORMATION
  Report Type: Spontaneous
  Country: DE (occurrence: DE)
  Receive Date: 20170509
  Receipt Date: 20170509
  Transmission Date: 20170830
  Serious: Yes (Hospitalization)
  Sender: FDA-Public Use
  Company Number: DE-TEVA-764820GER

PATIENT
  Age: 56 Year
  Sex: Male

DRUGS (5)
  1. PANTOPRAZOL ABZ [Concomitant]
     Active Substance: PANTOPRAZOLE SODIUM
     Dosage: LONG TIME MEDICATION
  2. HALDOL [Interacting]
     Active Substance: HALOPERIDOL
     Dosage: LONG TIME MEDICATION
  3. VALPROAT [Interacting]
     Active Substance: VALPROATE SODIUM
     Dosage: LONG TIME MEDICATION
  4. CLOZAPIN [Suspect]
     Active Substance: CLOZAPINE
     Dosage: LONG TIME MEDICATION
     Dates: end: 20150928
  5. DIPIPERON [Interacting]
     Active Substance: PIPAMPERONE
     Dosage: LONG TIME MEDICATION

REACTIONS (3)
  - Drug interaction [Unknown]
  - Pleurothotonus [Recovered/Resolved]
  - Parkinsonism [Recovered/Resolved]

NARRATIVE: CASE EVENT DATE: 20150929
